FAERS Safety Report 4296420-9 (Version None)
Quarter: 2004Q1

REPORT INFORMATION
  Report Type: 
  Country: None (occurrence: None)
  Receive Date: 20040212
  Receipt Date: 20040206
  Transmission Date: 20041129
  Serious: Yes (Life-Threatening)
  Sender: FDA-Public Use
  Company Number: TCI2004A00439

PATIENT
  Age: 78 Year
  Sex: Male

DRUGS (2)
  1. LEUPROLIDE ACETATE [Suspect]
     Indication: PROSTATE CANCER
     Dosage: 3.75 MG (3.75 MG, 1 IN 28 D) SUBCUTANEOUS  7 TIMES
     Route: 058
     Dates: start: 20030601, end: 20040101
  2. DOXIFLURIDINE (CAPSULES) [Concomitant]

REACTIONS (2)
  - ACQUIRED HAEMOPHILIA WITH ANTI FVIII, XI, OR XIII [None]
  - HAEMOLYTIC ANAEMIA [None]
